FAERS Safety Report 6140527-8 (Version None)
Quarter: 2009Q2

REPORT INFORMATION
  Report Type: 
  Country: None (occurrence: None)
  Receive Date: 20090402
  Receipt Date: 20070921
  Transmission Date: 20091009
  Serious: Yes (Death, Hospitalization, Other)
  Sender: FDA-Public Use
  Company Number: US-ASTRAZENECA-2006UW09037

PATIENT
  Age: 12962 Day
  Sex: Male

DRUGS (19)
  1. SEROQUEL [Suspect]
     Indication: SCHIZOPHRENIA
     Dosage: 25-600 MG
     Route: 048
     Dates: start: 19980424, end: 20010119
  2. SEROQUEL [Suspect]
     Indication: DEPRESSION
     Dosage: 25-600 MG
     Route: 048
     Dates: start: 19980424, end: 20010119
  3. RISPERDAL [Suspect]
     Indication: SCHIZOPHRENIA
     Dosage: 1MG- 6MG
     Dates: start: 20000301
  4. RISPERDAL [Suspect]
     Indication: DEPRESSION
     Dosage: 1MG- 6MG
     Dates: start: 20000301
  5. ZYPREXA [Suspect]
     Indication: SCHIZOPHRENIA
     Dosage: 5-10 MG
     Dates: start: 19980901, end: 20021001
  6. ZYPREXA [Suspect]
     Indication: DEPRESSION
     Dosage: 5-10 MG
     Dates: start: 19980901, end: 20021001
  7. ZOLOFT [Concomitant]
  8. LISINOPRIL [Concomitant]
  9. AMITRIPTYLINE HCL [Concomitant]
  10. ACTOS [Concomitant]
  11. GLUCOTROL [Concomitant]
  12. GLIPIZIDE [Concomitant]
  13. LIPITOR [Concomitant]
  14. ZOCOR [Concomitant]
  15. ASPIRIN [Concomitant]
  16. ALBUTEROL [Concomitant]
  17. ATIVAN [Concomitant]
  18. ABILIFY [Concomitant]
  19. COGENTIN [Concomitant]

REACTIONS (15)
  - BACK PAIN [None]
  - BRONCHITIS [None]
  - CHRONIC OBSTRUCTIVE PULMONARY DISEASE [None]
  - DEATH [None]
  - DIABETES MELLITUS [None]
  - HALLUCINATION [None]
  - OBESITY [None]
  - OEDEMA PERIPHERAL [None]
  - OROPHARYNGEAL PAIN [None]
  - PARANOIA [None]
  - RASH PRURITIC [None]
  - SCHIZOPHRENIA, PARANOID TYPE [None]
  - SUBSTANCE ABUSE [None]
  - SUICIDAL IDEATION [None]
  - VISION BLURRED [None]
